FAERS Safety Report 9636994 (Version 3)
Quarter: 2013Q4

REPORT INFORMATION
  Report Type: Report from Study
  Country: CA (occurrence: CA)
  Receive Date: 20131022
  Receipt Date: 20131205
  Transmission Date: 20140711
  Serious: Yes (Other)
  Sender: FDA-Public Use
  Company Number: CA-ROCHE-1167651

PATIENT
  Age: 42 Year
  Sex: Female
  Weight: 47.7 kg

DRUGS (7)
  1. RITUXAN [Suspect]
     Indication: RHEUMATOID ARTHRITIS
     Dosage: FREQUENCY: DAY 1 AND DAY 15
     Route: 042
     Dates: start: 20071023
  2. NEXIUM [Concomitant]
  3. PREDNISONE [Concomitant]
  4. TYLENOL #3 (CANADA) [Concomitant]
     Route: 065
     Dates: start: 20091015, end: 20091029
  5. DIPHENHYDRAMINE HCL [Concomitant]
     Indication: PREMEDICATION
     Route: 048
     Dates: start: 20091015
  6. ACETAMINOPHEN [Concomitant]
     Indication: PREMEDICATION
     Route: 048
     Dates: start: 20100928
  7. METHYLPREDNISOLONE [Concomitant]
     Indication: PREMEDICATION
     Route: 042
     Dates: start: 20091015

REACTIONS (4)
  - Hypertension [Unknown]
  - Infusion related reaction [Recovered/Resolved]
  - Kidney infection [Not Recovered/Not Resolved]
  - Arthropathy [Not Recovered/Not Resolved]
